FAERS Safety Report 9976068 (Version 16)
Quarter: 2016Q4

REPORT INFORMATION
  Report Type: Spontaneous
  Country: US (occurrence: US)
  Receive Date: 20140306
  Receipt Date: 20161117
  Transmission Date: 20170207
  Serious: Yes (Other)
  Sender: FDA-Public Use
  Company Number: US-ASTRAZENECA-2013SE69849

PATIENT
  Age: 961 Month
  Sex: Female
  Weight: 83.9 kg

DRUGS (98)
  1. CRESTOR [Suspect]
     Active Substance: ROSUVASTATIN CALCIUM
     Indication: LIPIDS ABNORMAL
     Route: 048
     Dates: start: 20131115
  2. CRESTOR [Suspect]
     Active Substance: ROSUVASTATIN CALCIUM
     Indication: HYPERLIPIDAEMIA
     Route: 048
  3. CRESTOR [Suspect]
     Active Substance: ROSUVASTATIN CALCIUM
     Indication: LOW DENSITY LIPOPROTEIN INCREASED
     Dosage: 5 MG FOUR TIMES A WEEK
     Route: 048
     Dates: start: 201311
  4. TOPROL XL [Suspect]
     Active Substance: METOPROLOL SUCCINATE
     Indication: HYPERTROPHIC CARDIOMYOPATHY
     Route: 048
     Dates: start: 20130823
  5. TOPROL XL [Suspect]
     Active Substance: METOPROLOL SUCCINATE
     Indication: CARDIAC DISORDER
     Route: 048
     Dates: start: 20130823
  6. TOPROL XL [Suspect]
     Active Substance: METOPROLOL SUCCINATE
     Indication: CARDIAC FAILURE
     Route: 048
     Dates: start: 20130823
  7. TOPROL XL [Suspect]
     Active Substance: METOPROLOL SUCCINATE
     Indication: HEART RATE ABNORMAL
     Route: 048
     Dates: start: 201501, end: 201506
  8. TOPROL XL [Suspect]
     Active Substance: METOPROLOL SUCCINATE
     Indication: CARDIAC DISORDER
     Route: 048
     Dates: start: 201507
  9. TOPROL XL [Suspect]
     Active Substance: METOPROLOL SUCCINATE
     Indication: AORTIC STENOSIS
     Route: 048
  10. TOPROL XL [Suspect]
     Active Substance: METOPROLOL SUCCINATE
     Indication: CARDIAC FAILURE
     Route: 048
  11. FUROSEMIDE. [Concomitant]
     Active Substance: FUROSEMIDE
     Indication: DIURETIC THERAPY
     Route: 048
     Dates: start: 2010
  12. ZANTAC [Concomitant]
     Active Substance: RANITIDINE HYDROCHLORIDE
     Indication: DYSPEPSIA
     Dosage: 75.0MG AS REQUIRED
     Route: 048
     Dates: start: 2006
  13. ADVIL [Concomitant]
     Active Substance: IBUPROFEN
     Indication: TOOTH DISORDER
     Dosage: 200.0MG AS REQUIRED
     Route: 048
     Dates: start: 2015
  14. ADVIL [Concomitant]
     Active Substance: IBUPROFEN
     Indication: SPINAL OSTEOARTHRITIS
     Dosage: 200.0MG AS REQUIRED
     Route: 048
     Dates: start: 2015
  15. CRESTOR [Suspect]
     Active Substance: ROSUVASTATIN CALCIUM
     Indication: HYPERLIPIDAEMIA
     Route: 048
     Dates: start: 20131115
  16. CRESTOR [Suspect]
     Active Substance: ROSUVASTATIN CALCIUM
     Indication: HYPERLIPIDAEMIA
     Dosage: 5 MG FOUR TIMES A WEEK
     Route: 048
     Dates: start: 201410
  17. CRESTOR [Suspect]
     Active Substance: ROSUVASTATIN CALCIUM
     Indication: LOW DENSITY LIPOPROTEIN INCREASED
     Dosage: 5 MG FOUR TIMES A WEEK
     Route: 048
     Dates: start: 201410
  18. TOPROL XL [Suspect]
     Active Substance: METOPROLOL SUCCINATE
     Indication: AORTIC STENOSIS
     Route: 048
     Dates: start: 201501, end: 201506
  19. TOPROL XL [Suspect]
     Active Substance: METOPROLOL SUCCINATE
     Indication: BLOOD PRESSURE ABNORMAL
     Route: 048
     Dates: start: 201501, end: 201506
  20. TOPROL XL [Suspect]
     Active Substance: METOPROLOL SUCCINATE
     Indication: HEART RATE ABNORMAL
     Route: 048
     Dates: start: 201507
  21. VERAPAMIL [Concomitant]
     Active Substance: VERAPAMIL HYDROCHLORIDE
     Indication: HEART RATE
     Route: 048
     Dates: start: 2010
  22. FUROSEMIDE. [Concomitant]
     Active Substance: FUROSEMIDE
     Indication: DIURETIC THERAPY
     Dosage: 20MG, 4 DAYS PER WEEK
     Route: 048
  23. FUROSEMIDE. [Concomitant]
     Active Substance: FUROSEMIDE
     Indication: FLUID RETENTION
     Dosage: 20 MG , ONE AND ONE HALF TABLET, 3 DAYS PER WEEK
     Route: 048
  24. FUROSEMIDE. [Concomitant]
     Active Substance: FUROSEMIDE
     Indication: FLUID RETENTION
     Dosage: DAILY AS NEEDED
     Route: 048
  25. ASPIRIN. [Concomitant]
     Active Substance: ASPIRIN
     Indication: ANTICOAGULANT THERAPY
     Dosage: 81.0MG UNKNOWN
     Route: 048
  26. VITAMIN D [Concomitant]
     Active Substance: CHOLECALCIFEROL
     Indication: BLOOD CALCIUM ABNORMAL
  27. VITAMIN D [Concomitant]
     Active Substance: CHOLECALCIFEROL
     Indication: VITAMIN D DEFICIENCY
     Route: 048
     Dates: start: 2014
  28. ZANTAC [Concomitant]
     Active Substance: RANITIDINE HYDROCHLORIDE
     Indication: OESOPHAGEAL DISORDER
     Dosage: 75.0MG AS REQUIRED
     Route: 048
     Dates: start: 2006
  29. CRESTOR [Suspect]
     Active Substance: ROSUVASTATIN CALCIUM
     Indication: BLOOD CHOLESTEROL ABNORMAL
     Route: 048
     Dates: start: 20131115
  30. TOPROL XL [Suspect]
     Active Substance: METOPROLOL SUCCINATE
     Indication: BLOOD PRESSURE SYSTOLIC ABNORMAL
     Route: 048
     Dates: start: 20130823
  31. TOPROL XL [Suspect]
     Active Substance: METOPROLOL SUCCINATE
     Indication: HEART RATE ABNORMAL
     Route: 048
  32. TOPROL XL [Suspect]
     Active Substance: METOPROLOL SUCCINATE
     Indication: CARDIAC FAILURE
     Route: 048
  33. TOPROL XL [Suspect]
     Active Substance: METOPROLOL SUCCINATE
     Indication: BLOOD PRESSURE SYSTOLIC ABNORMAL
     Route: 048
     Dates: start: 201501, end: 201506
  34. TOPROL XL [Suspect]
     Active Substance: METOPROLOL SUCCINATE
     Indication: HYPERTROPHIC CARDIOMYOPATHY
     Route: 048
     Dates: start: 201507
  35. FUROSEMIDE. [Concomitant]
     Active Substance: FUROSEMIDE
     Indication: OEDEMA PERIPHERAL
     Route: 048
     Dates: start: 2010
  36. FUROSEMIDE. [Concomitant]
     Active Substance: FUROSEMIDE
     Indication: FLUID RETENTION
     Route: 048
     Dates: start: 2010
  37. FUROSEMIDE. [Concomitant]
     Active Substance: FUROSEMIDE
     Indication: OEDEMA PERIPHERAL
     Dosage: DAILY AS NEEDED
     Route: 048
  38. TOPROL XL [Suspect]
     Active Substance: METOPROLOL SUCCINATE
     Indication: AORTIC STENOSIS
     Route: 048
     Dates: start: 20130823
  39. TOPROL XL [Suspect]
     Active Substance: METOPROLOL SUCCINATE
     Indication: AORTIC STENOSIS
     Route: 048
  40. TOPROL XL [Suspect]
     Active Substance: METOPROLOL SUCCINATE
     Indication: BLOOD PRESSURE ABNORMAL
     Route: 048
  41. TOPROL XL [Suspect]
     Active Substance: METOPROLOL SUCCINATE
     Indication: BLOOD PRESSURE SYSTOLIC ABNORMAL
     Route: 048
  42. TOPROL XL [Suspect]
     Active Substance: METOPROLOL SUCCINATE
     Indication: CARDIAC DISORDER
     Route: 048
  43. TOPROL XL [Suspect]
     Active Substance: METOPROLOL SUCCINATE
     Indication: CARDIAC FAILURE
     Route: 048
     Dates: start: 201507
  44. TOPROL XL [Suspect]
     Active Substance: METOPROLOL SUCCINATE
     Indication: HEART RATE ABNORMAL
     Route: 048
  45. VERAPAMIL [Concomitant]
     Active Substance: VERAPAMIL HYDROCHLORIDE
     Indication: HYPERTROPHIC CARDIOMYOPATHY
     Route: 048
     Dates: start: 2010
  46. FUROSEMIDE. [Concomitant]
     Active Substance: FUROSEMIDE
     Indication: OEDEMA PERIPHERAL
     Dosage: 20 MG , ONE AND ONE HALF TABLET, 3 DAYS PER WEEK
     Route: 048
  47. FUROSEMIDE. [Concomitant]
     Active Substance: FUROSEMIDE
     Indication: OEDEMA PERIPHERAL
     Route: 048
     Dates: start: 2010
  48. EVISTA [Concomitant]
     Active Substance: RALOXIFENE HYDROCHLORIDE
     Indication: OSTEOPOROSIS
     Route: 048
     Dates: start: 2006
  49. VITAMIN D [Concomitant]
     Active Substance: CHOLECALCIFEROL
     Indication: BONE DISORDER
  50. CRESTOR [Suspect]
     Active Substance: ROSUVASTATIN CALCIUM
     Indication: LOW DENSITY LIPOPROTEIN INCREASED
     Route: 048
     Dates: start: 20131115
  51. CRESTOR [Suspect]
     Active Substance: ROSUVASTATIN CALCIUM
     Indication: LIPIDS ABNORMAL
     Dosage: 5 MG FOUR TIMES A WEEK
     Route: 048
     Dates: start: 201311
  52. TOPROL XL [Suspect]
     Active Substance: METOPROLOL SUCCINATE
     Indication: CARDIAC FAILURE
     Route: 048
  53. TOPROL XL [Suspect]
     Active Substance: METOPROLOL SUCCINATE
     Indication: HEART RATE ABNORMAL
     Route: 048
  54. TOPROL XL [Suspect]
     Active Substance: METOPROLOL SUCCINATE
     Indication: BLOOD PRESSURE ABNORMAL
     Route: 048
     Dates: start: 201507
  55. TOPROL XL [Suspect]
     Active Substance: METOPROLOL SUCCINATE
     Indication: CARDIAC DISORDER
     Route: 048
  56. VERAPAMIL [Concomitant]
     Active Substance: VERAPAMIL HYDROCHLORIDE
     Indication: AORTIC STENOSIS
     Route: 048
     Dates: start: 2010
  57. FUROSEMIDE. [Concomitant]
     Active Substance: FUROSEMIDE
     Indication: FLUID RETENTION
     Dosage: 20MG, 4 DAYS PER WEEK
     Route: 048
  58. ASPIRIN. [Concomitant]
     Active Substance: ASPIRIN
     Indication: ANTICOAGULANT THERAPY
     Dosage: 160 MG, DAILY UNKNOWN
     Route: 048
     Dates: start: 2010
  59. ASPIRIN. [Concomitant]
     Active Substance: ASPIRIN
     Indication: ANTICOAGULANT THERAPY
     Dosage: 160 MG, DAILY UNKNOWN
     Route: 048
     Dates: start: 2012
  60. VITAMIN D [Concomitant]
     Active Substance: CHOLECALCIFEROL
     Indication: VITAMIN D DEFICIENCY
  61. VITAMIN D [Concomitant]
     Active Substance: CHOLECALCIFEROL
     Indication: BONE DISORDER
  62. VITAMIN D [Concomitant]
     Active Substance: CHOLECALCIFEROL
     Indication: BONE DISORDER
     Route: 048
     Dates: start: 2014
  63. CALCIUM [Concomitant]
     Active Substance: CALCIUM
  64. CRESTOR [Suspect]
     Active Substance: ROSUVASTATIN CALCIUM
     Indication: BLOOD CHOLESTEROL ABNORMAL
     Route: 048
  65. CRESTOR [Suspect]
     Active Substance: ROSUVASTATIN CALCIUM
     Indication: LOW DENSITY LIPOPROTEIN INCREASED
     Route: 048
  66. CRESTOR [Suspect]
     Active Substance: ROSUVASTATIN CALCIUM
     Indication: HYPERLIPIDAEMIA
     Dosage: 5 MG FOUR TIMES A WEEK
     Route: 048
     Dates: start: 201311
  67. CRESTOR [Suspect]
     Active Substance: ROSUVASTATIN CALCIUM
     Indication: BLOOD CHOLESTEROL ABNORMAL
     Dosage: 5 MG FOUR TIMES A WEEK
     Route: 048
     Dates: start: 201410
  68. TOPROL XL [Suspect]
     Active Substance: METOPROLOL SUCCINATE
     Indication: AORTIC STENOSIS
     Route: 048
  69. TOPROL XL [Suspect]
     Active Substance: METOPROLOL SUCCINATE
     Indication: CARDIAC DISORDER
     Route: 048
     Dates: start: 201501, end: 201506
  70. TOPROL XL [Suspect]
     Active Substance: METOPROLOL SUCCINATE
     Indication: BLOOD PRESSURE SYSTOLIC ABNORMAL
     Route: 048
     Dates: start: 201507
  71. TOPROL XL [Suspect]
     Active Substance: METOPROLOL SUCCINATE
     Indication: BLOOD PRESSURE SYSTOLIC ABNORMAL
     Route: 048
  72. VERAPAMIL [Concomitant]
     Active Substance: VERAPAMIL HYDROCHLORIDE
     Indication: BLOOD PRESSURE MEASUREMENT
     Route: 048
     Dates: start: 2010
  73. FUROSEMIDE. [Concomitant]
     Active Substance: FUROSEMIDE
     Indication: FLUID RETENTION
     Route: 048
     Dates: start: 2010
  74. FUROSEMIDE. [Concomitant]
     Active Substance: FUROSEMIDE
     Indication: DIURETIC THERAPY
     Dosage: DAILY AS NEEDED
     Route: 048
  75. VITAMIN D [Concomitant]
     Active Substance: CHOLECALCIFEROL
     Indication: BLOOD CALCIUM ABNORMAL
  76. VITAMIN D [Concomitant]
     Active Substance: CHOLECALCIFEROL
     Indication: BLOOD CALCIUM ABNORMAL
     Route: 048
     Dates: start: 2014
  77. TOPROL XL [Suspect]
     Active Substance: METOPROLOL SUCCINATE
     Indication: HEART RATE ABNORMAL
     Route: 048
     Dates: start: 20130823
  78. TOPROL XL [Suspect]
     Active Substance: METOPROLOL SUCCINATE
     Indication: BLOOD PRESSURE ABNORMAL
     Route: 048
     Dates: start: 20130823
  79. TOPROL XL [Suspect]
     Active Substance: METOPROLOL SUCCINATE
     Indication: BLOOD PRESSURE SYSTOLIC ABNORMAL
     Route: 048
  80. TOPROL XL [Suspect]
     Active Substance: METOPROLOL SUCCINATE
     Indication: HYPERTROPHIC CARDIOMYOPATHY
     Route: 048
  81. TOPROL XL [Suspect]
     Active Substance: METOPROLOL SUCCINATE
     Indication: HYPERTROPHIC CARDIOMYOPATHY
     Route: 048
  82. TOPROL XL [Suspect]
     Active Substance: METOPROLOL SUCCINATE
     Indication: BLOOD PRESSURE ABNORMAL
     Route: 048
  83. FUROSEMIDE. [Concomitant]
     Active Substance: FUROSEMIDE
     Indication: DIURETIC THERAPY
     Dosage: 20 MG , ONE AND ONE HALF TABLET, 3 DAYS PER WEEK
     Route: 048
  84. ASPIRIN. [Concomitant]
     Active Substance: ASPIRIN
     Indication: ANTICOAGULANT THERAPY
     Dosage: 162.0MG UNKNOWN
     Route: 048
     Dates: start: 2010
  85. EVISTA [Concomitant]
     Active Substance: RALOXIFENE HYDROCHLORIDE
     Indication: OSTEOPOROSIS
     Route: 048
     Dates: start: 2010
  86. VITAMIN D [Concomitant]
     Active Substance: CHOLECALCIFEROL
     Indication: VITAMIN D DEFICIENCY
  87. CRESTOR [Suspect]
     Active Substance: ROSUVASTATIN CALCIUM
     Indication: LIPIDS ABNORMAL
     Route: 048
  88. CRESTOR [Suspect]
     Active Substance: ROSUVASTATIN CALCIUM
     Indication: BLOOD CHOLESTEROL ABNORMAL
     Dosage: 5 MG FOUR TIMES A WEEK
     Route: 048
     Dates: start: 201311
  89. CRESTOR [Suspect]
     Active Substance: ROSUVASTATIN CALCIUM
     Indication: LIPIDS ABNORMAL
     Dosage: 5 MG FOUR TIMES A WEEK
     Route: 048
     Dates: start: 201410
  90. TOPROL XL [Suspect]
     Active Substance: METOPROLOL SUCCINATE
     Indication: HYPERTROPHIC CARDIOMYOPATHY
     Route: 048
  91. TOPROL XL [Suspect]
     Active Substance: METOPROLOL SUCCINATE
     Indication: CARDIAC DISORDER
     Route: 048
  92. TOPROL XL [Suspect]
     Active Substance: METOPROLOL SUCCINATE
     Indication: BLOOD PRESSURE ABNORMAL
     Route: 048
  93. TOPROL XL [Suspect]
     Active Substance: METOPROLOL SUCCINATE
     Indication: HYPERTROPHIC CARDIOMYOPATHY
     Route: 048
     Dates: start: 201501, end: 201506
  94. TOPROL XL [Suspect]
     Active Substance: METOPROLOL SUCCINATE
     Indication: CARDIAC FAILURE
     Route: 048
     Dates: start: 201501, end: 201506
  95. TOPROL XL [Suspect]
     Active Substance: METOPROLOL SUCCINATE
     Indication: AORTIC STENOSIS
     Route: 048
     Dates: start: 201507
  96. LIPITOR [Suspect]
     Active Substance: ATORVASTATIN CALCIUM
     Route: 065
     Dates: end: 20131115
  97. FUROSEMIDE. [Concomitant]
     Active Substance: FUROSEMIDE
     Indication: OEDEMA PERIPHERAL
     Dosage: 20MG, 4 DAYS PER WEEK
     Route: 048
  98. FUROSEMIDE. [Concomitant]
     Active Substance: FUROSEMIDE
     Indication: DIURETIC THERAPY
     Route: 048
     Dates: start: 2010

REACTIONS (42)
  - Productive cough [Not Recovered/Not Resolved]
  - Wheezing [Recovering/Resolving]
  - Nervousness [Not Recovered/Not Resolved]
  - Dysphonia [Not Recovered/Not Resolved]
  - Bradycardia [Unknown]
  - Blood creatine phosphokinase increased [Unknown]
  - Fatigue [Not Recovered/Not Resolved]
  - Low density lipoprotein increased [Unknown]
  - Hypersensitivity [Unknown]
  - Activities of daily living impaired [Unknown]
  - Tracheobronchitis viral [Recovering/Resolving]
  - Musculoskeletal disorder [Unknown]
  - Muscle spasms [Unknown]
  - Back pain [Not Recovered/Not Resolved]
  - Macular degeneration [Unknown]
  - Pain [Unknown]
  - Intentional product misuse [Unknown]
  - Stress [Not Recovered/Not Resolved]
  - Chest pain [Unknown]
  - Off label use [Not Recovered/Not Resolved]
  - Myocardial necrosis marker increased [Unknown]
  - Dry eye [Unknown]
  - Blood glucose increased [Unknown]
  - Toothache [Unknown]
  - Overweight [Unknown]
  - Malaise [Not Recovered/Not Resolved]
  - Oesophageal pain [Not Recovered/Not Resolved]
  - Peripheral swelling [Not Recovered/Not Resolved]
  - Atrial flutter [Unknown]
  - Blood pressure systolic increased [Unknown]
  - Tooth disorder [Not Recovered/Not Resolved]
  - Throat irritation [Not Recovered/Not Resolved]
  - Fall [Unknown]
  - Memory impairment [Not Recovered/Not Resolved]
  - Diarrhoea [Unknown]
  - Dyspnoea [Not Recovered/Not Resolved]
  - Cardiac disorder [Unknown]
  - Arthritis [Not Recovered/Not Resolved]
  - Confusional state [Unknown]
  - Neuropathy peripheral [Not Recovered/Not Resolved]
  - Headache [Not Recovered/Not Resolved]
  - Product use issue [Unknown]

NARRATIVE: CASE EVENT DATE: 201310
